FAERS Safety Report 7916197-2 (Version None)
Quarter: 2011Q4

REPORT INFORMATION
  Report Type: 
  Country: None (occurrence: None)
  Receive Date: 20111116
  Receipt Date: 20111107
  Transmission Date: 20120403
  Serious: No
  Sender: FDA-Public Use
  Company Number: US-BIOGENIDEC-2011BI002424

PATIENT
  Sex: Female

DRUGS (5)
  1. REBIF [Concomitant]
     Indication: MUSCULOSKELETAL DISORDER
  2. DILANTIN [Concomitant]
     Indication: MUSCULOSKELETAL DISORDER
  3. NEURONTIN [Concomitant]
     Indication: MUSCULOSKELETAL DISORDER
  4. TYSABRI [Suspect]
     Indication: MULTIPLE SCLEROSIS
     Route: 042
     Dates: start: 20101130
  5. LASIX [Concomitant]
     Indication: SWELLING
     Dates: start: 20100101

REACTIONS (8)
  - ANXIETY [None]
  - DYSURIA [None]
  - STRESS [None]
  - ASTHENIA [None]
  - TRIGEMINAL NEURALGIA [None]
  - FAECAL INCONTINENCE [None]
  - URINARY RETENTION [None]
  - MULTIPLE SCLEROSIS RELAPSE [None]
